FAERS Safety Report 7222651-1 (Version None)
Quarter: 2011Q1

REPORT INFORMATION
  Report Type: 
  Country: None (occurrence: None)
  Receive Date: 20110112
  Receipt Date: 20101129
  Transmission Date: 20110831
  Serious: Yes (Death, Hospitalization, Other)
  Sender: FDA-Public Use
  Company Number: US-BAXTER-2010BH002997

PATIENT
  Age: 38 Year
  Sex: Male
  Weight: 118 kg

DRUGS (32)
  1. HEPARIN SODIUM INJECTION [Suspect]
     Indication: HAEMODIALYSIS
     Route: 042
     Dates: start: 20080129, end: 20080129
  2. HEPARIN SODIUM INJECTION [Suspect]
     Route: 042
     Dates: start: 20080130, end: 20080130
  3. HEPARIN SODIUM 10,000 UNITS IN SODIUM CHLORIDE 0.45% [Suspect]
     Indication: THROMBOLYSIS
     Route: 041
     Dates: start: 20080129, end: 20080131
  4. SODIUM BICARBONATE [Concomitant]
     Indication: PRODUCT USED FOR UNKNOWN INDICATION
     Route: 065
  5. ALLOPURINOL [Concomitant]
     Indication: PRODUCT USED FOR UNKNOWN INDICATION
     Route: 065
  6. CALCITRIOL [Concomitant]
     Indication: PRODUCT USED FOR UNKNOWN INDICATION
     Route: 065
  7. PHOSLO [Concomitant]
     Indication: PRODUCT USED FOR UNKNOWN INDICATION
     Route: 065
  8. CLONIDINE HYDROCHLORIDE [Concomitant]
     Indication: PRODUCT USED FOR UNKNOWN INDICATION
     Route: 065
  9. HEPARIN SODIUM INJECTION [Suspect]
     Route: 042
     Dates: start: 20080130, end: 20080130
  10. HEPARIN SODIUM INJECTION [Suspect]
     Route: 065
     Dates: start: 20080128, end: 20080131
  11. HEPARIN SODIUM INJECTION [Suspect]
     Route: 042
     Dates: start: 20080131, end: 20080131
  12. XANAX [Concomitant]
     Indication: PRODUCT USED FOR UNKNOWN INDICATION
     Route: 065
  13. HEPARIN SODIUM INJECTION [Suspect]
     Route: 042
     Dates: start: 20080121, end: 20080123
  14. ACTIVASE [Suspect]
     Indication: THROMBOLYSIS
     Route: 042
     Dates: start: 20080128, end: 20080129
  15. NEPHROCAPS [Concomitant]
     Indication: PRODUCT USED FOR UNKNOWN INDICATION
     Route: 048
  16. TEMAZEPAM [Concomitant]
     Indication: PRODUCT USED FOR UNKNOWN INDICATION
     Route: 065
  17. LIDOCAINE HCL IN 5% DEXTROSE INJECTION IN PLASTIC CONTAINER [Concomitant]
     Indication: PRODUCT USED FOR UNKNOWN INDICATION
     Route: 065
  18. HEPARIN SODIUM INJECTION [Suspect]
     Route: 065
     Dates: start: 20080128, end: 20080131
  19. LASIX [Concomitant]
     Indication: PRODUCT USED FOR UNKNOWN INDICATION
     Route: 065
  20. TOPROL-XL [Concomitant]
     Indication: PRODUCT USED FOR UNKNOWN INDICATION
     Route: 065
  21. ASPIRIN [Concomitant]
     Indication: PRODUCT USED FOR UNKNOWN INDICATION
     Route: 065
  22. HEPARIN SODIUM INJECTION [Suspect]
     Indication: THROMBOLYSIS
     Route: 042
     Dates: start: 20080129, end: 20080129
  23. HEPARIN SODIUM INJECTION [Suspect]
     Route: 042
     Dates: start: 20080131, end: 20080131
  24. HEPARIN SODIUM INJECTION [Suspect]
     Route: 042
     Dates: start: 20080131, end: 20080131
  25. NIFEDIPINE [Concomitant]
     Indication: PRODUCT USED FOR UNKNOWN INDICATION
     Route: 065
  26. HEPARIN SODIUM INJECTION [Suspect]
     Route: 042
     Dates: start: 20080131, end: 20080131
  27. SIMVASTATIN [Concomitant]
     Indication: PRODUCT USED FOR UNKNOWN INDICATION
     Route: 065
  28. FOLIC ACID [Concomitant]
     Indication: PRODUCT USED FOR UNKNOWN INDICATION
     Route: 065
  29. NEO-SYNEPHRINOL [Concomitant]
     Indication: PRODUCT USED FOR UNKNOWN INDICATION
     Route: 065
  30. HEPARIN SODIUM INJECTION [Suspect]
     Route: 041
     Dates: start: 20080128
  31. HEPARIN SODIUM INJECTION [Suspect]
     Route: 041
     Dates: start: 20080128
  32. HEPARIN SODIUM INJECTION [Suspect]
     Route: 042
     Dates: start: 20080121, end: 20080123

REACTIONS (11)
  - CARDIAC ARREST [None]
  - VASCULAR PSEUDOANEURYSM [None]
  - HYPOTENSION [None]
  - ARTERIOVENOUS FISTULA ANEURYSM [None]
  - HAEMODYNAMIC INSTABILITY [None]
  - MYOCARDIAL INFARCTION [None]
  - RESPIRATORY ARREST [None]
  - SHOCK [None]
  - DYSPNOEA [None]
  - ARTERIAL THROMBOSIS LIMB [None]
  - ABDOMINAL PAIN [None]
